FAERS Safety Report 24076433 (Version 1)
Quarter: 2024Q3

REPORT INFORMATION
  Report Type: Spontaneous
  Country: FR (occurrence: FR)
  Receive Date: 20240711
  Receipt Date: 20240711
  Transmission Date: 20241017
  Serious: Yes (Death)
  Sender: CHEPLAPHARM
  Company Number: None

PATIENT
  Age: 66 Year
  Sex: Female
  Weight: 65 kg

DRUGS (11)
  1. OLANZAPINE [Suspect]
     Active Substance: OLANZAPINE
     Indication: Schizophrenia
     Dosage: 1-0-1?DAILY DOSE: 10 MILLIGRAM
     Route: 048
  2. AMISULPRIDE [Suspect]
     Active Substance: AMISULPRIDE
     Indication: Schizophrenia
     Dosage: 1-1-1?DAILY DOSE: 1 DOSAGE FORM
     Route: 048
  3. LORAZEPAM [Suspect]
     Active Substance: LORAZEPAM
     Indication: Schizophrenia
     Dosage: 1-1-1?DAILY DOSE: 7.5 MILLIGRAM
     Route: 048
  4. LOXAPINE SUCCINATE [Suspect]
     Active Substance: LOXAPINE SUCCINATE
     Indication: Schizophrenia
     Dosage: 1-0-1?DAILY DOSE: 50 MILLIGRAM
     Route: 048
  5. TRIHEXYPHENIDYL HYDROCHLORIDE [Suspect]
     Active Substance: TRIHEXYPHENIDYL HYDROCHLORIDE
     Indication: Extrapyramidal disorder
     Dosage: 0-0-1?DAILY DOSE: 1 DOSAGE FORM
     Route: 048
  6. POLYETHYLENE GLYCOLS [Concomitant]
     Active Substance: POLYETHYLENE GLYCOLS
     Dosage: 2-2-0 IF NECESSARY?DAILY DOSE: 40 GRAM
     Route: 048
  7. LEVOTHYROXINE [Concomitant]
     Active Substance: LEVOTHYROXINE\LEVOTHYROXINE SODIUM
     Dosage: 1-0-0?DAILY DOSE: 1 DOSAGE FORM
     Route: 048
  8. ACETAMINOPHEN [Concomitant]
     Active Substance: ACETAMINOPHEN
     Dosage: 3 TIMES A DAY IF NECESSARY
     Route: 048
  9. ATORVASTATIN [Concomitant]
     Active Substance: ATORVASTATIN
     Dosage: 0-0-1?DAILY DOSE: 10 MILLIGRAM
     Route: 048
  10. NORMACOL [Concomitant]
     Active Substance: HERBALS\KARAYA GUM
  11. X-prep [Concomitant]
     Dosage: 1 SACHET IF NECESSARY

REACTIONS (3)
  - Drug interaction [Fatal]
  - Subileus [Fatal]
  - Cardio-respiratory arrest [Fatal]

NARRATIVE: CASE EVENT DATE: 20240503
